FAERS Safety Report 19854129 (Version 1)
Quarter: 2021Q3

REPORT INFORMATION
  Report Type: Spontaneous
  Country: CA (occurrence: CA)
  Receive Date: 20210920
  Receipt Date: 20210920
  Transmission Date: 20211014
  Serious: Yes (Life-Threatening, Hospitalization, Other)
  Sender: FDA-Public Use
  Company Number: CA-PURACAP-CA-2021EPCLIT00982

PATIENT
  Age: 20 Year
  Sex: Female
  Weight: 68 kg

DRUGS (10)
  1. N?ACETYLCYSTEINE [Interacting]
     Active Substance: ACETYLCYSTEINE
     Dosage: PER HOUR
     Route: 065
  2. IBUPROFEN. [Suspect]
     Active Substance: IBUPROFEN
     Indication: PRODUCT USED FOR UNKNOWN INDICATION
     Route: 048
  3. N?ACETYLCYSTEINE [Interacting]
     Active Substance: ACETYLCYSTEINE
     Indication: OVERDOSE
     Route: 042
  4. FOMEPIZOLE. [Interacting]
     Active Substance: FOMEPIZOLE
     Dosage: Q12 H
     Route: 065
  5. OXYCODONE [Concomitant]
     Active Substance: OXYCODONE
     Indication: PRODUCT USED FOR UNKNOWN INDICATION
     Route: 048
  6. ACETAMINOPHEN. [Suspect]
     Active Substance: ACETAMINOPHEN
     Indication: PRODUCT USED FOR UNKNOWN INDICATION
     Route: 048
  7. NOREPINEPHRINE BITARTRATE. [Interacting]
     Active Substance: NOREPINEPHRINE BITARTRATE
     Indication: SUPPORTIVE CARE
     Dosage: PER MIN
     Route: 042
  8. EPINEPHRINE. [Interacting]
     Active Substance: EPINEPHRINE
     Indication: SUPPORTIVE CARE
     Dosage: PER MIN
     Route: 042
  9. SODIUM BICARBONATE. [Interacting]
     Active Substance: SODIUM BICARBONATE
     Indication: SUPPORTIVE CARE
     Route: 065
  10. FOMEPIZOLE. [Interacting]
     Active Substance: FOMEPIZOLE
     Indication: PRODUCT USED FOR UNKNOWN INDICATION
     Route: 065

REACTIONS (6)
  - Shock [Recovered/Resolved]
  - Toxicity to various agents [Recovered/Resolved]
  - Coma [Recovered/Resolved]
  - Metabolic acidosis [Recovered/Resolved]
  - Overdose [Unknown]
  - Hyperkaliuria [Recovered/Resolved]
